FAERS Safety Report 25930102 (Version 2)
Quarter: 2025Q4

REPORT INFORMATION
  Report Type: Spontaneous
  Country: US (occurrence: US)
  Receive Date: 20251016
  Receipt Date: 20251023
  Transmission Date: 20260117
  Serious: No
  Sender: TRIS PHARMA, INC.
  Company Number: US-TRIS PHARMA, INC.-25US012120

PATIENT

DRUGS (4)
  1. ONYDA XR [Suspect]
     Active Substance: CLONIDINE HYDROCHLORIDE
     Indication: Attention deficit hyperactivity disorder
     Dosage: 2 MILLILITRE
     Route: 048
     Dates: start: 2025
  2. ONYDA XR [Suspect]
     Active Substance: CLONIDINE HYDROCHLORIDE
     Dosage: 2 MILLILITRE
     Route: 048
     Dates: start: 2025, end: 20250930
  3. ONYDA XR [Suspect]
     Active Substance: CLONIDINE HYDROCHLORIDE
     Dosage: 1 MILLILITRE
     Route: 048
     Dates: start: 20250826, end: 2025
  4. MELATONIN [Concomitant]
     Active Substance: MELATONIN
     Indication: Sleep deficit
     Dosage: UNK
     Route: 048

REACTIONS (3)
  - Product dose omission issue [Unknown]
  - Product availability issue [Unknown]
  - Therapeutic response shortened [Unknown]

NARRATIVE: CASE EVENT DATE: 20250101
